FAERS Safety Report 8991403 (Version 1)
Quarter: 2012Q4

REPORT INFORMATION
  Report Type: 
  Country: JP (occurrence: JP)
  Receive Date: 20121229
  Receipt Date: 20121229
  Transmission Date: 20130627
  Serious: Yes (Other)
  Sender: FDA-Public Use
  Company Number: JP-MERCK-1212JPN011038

PATIENT

DRUGS (1)
  1. ELAVIL [Suspect]
     Route: 048

REACTIONS (1)
  - Gastrin secretion disorder [Unknown]
